FAERS Safety Report 8418751-0 (Version None)
Quarter: 2012Q2

REPORT INFORMATION
  Report Type: 
  Country: None (occurrence: None)
  Receive Date: 20120607
  Receipt Date: 20120531
  Transmission Date: 20120825
  Serious: Yes (Other)
  Sender: FDA-Public Use
  Company Number: US-BAYER-2012-055854

PATIENT

DRUGS (1)
  1. ASPIRIN [Suspect]
     Indication: HEADACHE
     Dosage: BOTTLE COUNT 20S
     Route: 048

REACTIONS (2)
  - LARGE INTESTINAL HAEMORRHAGE [None]
  - GASTROINTESTINAL PAIN [None]
